FAERS Safety Report 22157114 (Version 1)
Quarter: 2023Q1

REPORT INFORMATION
  Report Type: Spontaneous
  Country: US (occurrence: US)
  Receive Date: 20230330
  Receipt Date: 20230330
  Transmission Date: 20230418
  Serious: Yes (Other)
  Sender: FDA-Public Use
  Company Number: US-MYOVANT SCIENCES GMBH-2023MYSCI0300700

PATIENT
  Age: 79 Year
  Sex: Male

DRUGS (5)
  1. ORGOVYX [Suspect]
     Active Substance: RELUGOLIX
     Indication: Prostate cancer
     Dosage: 120 MILLIGRAM, QD
     Route: 048
     Dates: start: 20220529
  2. ASPIRIN [Concomitant]
     Active Substance: ASPIRIN
     Indication: Peripheral vascular disorder
     Dosage: 1 TAB, QD
     Route: 065
  3. VITAMIN D3 [Concomitant]
     Active Substance: CHOLECALCIFEROL
     Indication: Vitamin D decreased
     Dosage: 400 INTERNATIONAL UNIT, QD
     Route: 065
  4. PLAVIX [Concomitant]
     Active Substance: CLOPIDOGREL BISULFATE
     Indication: Peripheral vascular disorder
     Dosage: 75 MILLIGRAM, 3 TIMES/WK
     Route: 065
  5. APALUTAMIDE [Concomitant]
     Active Substance: APALUTAMIDE
     Indication: Prostate cancer
     Dosage: 240 MILLIGRAM, QID
     Route: 065
     Dates: start: 20220615

REACTIONS (4)
  - Peripheral vascular disorder [Unknown]
  - Incorrect dose administered [Not Recovered/Not Resolved]
  - Therapy interrupted [Recovered/Resolved]
  - Product distribution issue [Recovered/Resolved]

NARRATIVE: CASE EVENT DATE: 20220615
